FAERS Safety Report 6674888-8 (Version None)
Quarter: 2010Q2

REPORT INFORMATION
  Report Type: 
  Country: None (occurrence: None)
  Receive Date: 20100409
  Receipt Date: 20100331
  Transmission Date: 20101027
  Serious: Yes (Hospitalization)
  Sender: FDA-Public Use
  Company Number: US-JNJFOC-20100400565

PATIENT
  Age: 28 Year
  Sex: Female

DRUGS (3)
  1. REMICADE [Suspect]
     Indication: COLITIS ULCERATIVE
     Route: 042
  2. HUMIRA [Suspect]
     Indication: COLITIS ULCERATIVE
     Route: 058
  3. CORTICOSTEROIDS [Concomitant]

REACTIONS (3)
  - COLECTOMY [None]
  - HEART RATE DECREASED [None]
  - UNRESPONSIVE TO STIMULI [None]
